FAERS Safety Report 25406910 (Version 1)
Quarter: 2025Q2

REPORT INFORMATION
  Report Type: Spontaneous
  Country: US (occurrence: US)
  Receive Date: 20250606
  Receipt Date: 20250606
  Transmission Date: 20250717
  Serious: Yes (Hospitalization, Other)
  Sender: GENUS LIFESCIENCES
  Company Number: US-Genus_Lifesciences-USA-ALL0580202500129

PATIENT
  Age: 79 Year
  Sex: Male

DRUGS (4)
  1. ASPIRIN\CARISOPRODOL [Suspect]
     Active Substance: ASPIRIN\CARISOPRODOL
     Indication: Anticoagulant therapy
     Route: 048
  2. CLOPIDOGREL [Concomitant]
     Active Substance: CLOPIDOGREL BISULFATE
     Indication: Anticoagulant therapy
  3. HEPARIN [Concomitant]
     Active Substance: HEPARIN SODIUM
     Indication: Anticoagulant therapy
  4. UNSPECIFIED INGREDIENT [Concomitant]
     Active Substance: UNSPECIFIED INGREDIENT
     Indication: General anaesthesia
     Dates: start: 2025, end: 2025

REACTIONS (6)
  - Decubitus ulcer [Recovered/Resolved]
  - Blindness transient [Recovered/Resolved]
  - Periosteal haematoma [Recovered/Resolved]
  - Optic neuropathy [Recovered/Resolved]
  - Orbital compartment syndrome [Recovered/Resolved]
  - Periorbital oedema [Recovered/Resolved]

NARRATIVE: CASE EVENT DATE: 20250101
